FAERS Safety Report 16585167 (Version 1)
Quarter: 2019Q3

REPORT INFORMATION
  Report Type: Spontaneous
  Country: US (occurrence: US)
  Receive Date: 20190604
  Receipt Date: 20190604
  Transmission Date: 20191004
  Serious: No
  Sender: FDA-Public Use
  Company Number: None

PATIENT
  Sex: Female

DRUGS (2)
  1. CAPECITABINE 500MG [Suspect]
     Active Substance: CAPECITABINE
     Indication: COLON CANCER
     Dosage: ?          OTHER FREQUENCY:SEE EVENT;?
     Route: 048
     Dates: start: 20190418
  2. CAPECITABINE 150MG [Suspect]
     Active Substance: CAPECITABINE
     Indication: COLON CANCER
     Dosage: ?          OTHER FREQUENCY:SEE EVENT;?
     Route: 048
     Dates: start: 20190418

REACTIONS (6)
  - Fatigue [None]
  - Skin exfoliation [None]
  - Disturbance in attention [None]
  - Tremor [None]
  - Infusion related reaction [None]
  - Paraesthesia [None]
